FAERS Safety Report 6809783-4 (Version None)
Quarter: 2010Q2

REPORT INFORMATION
  Report Type: 
  Country: None (occurrence: None)
  Receive Date: 20100630
  Receipt Date: 20100623
  Transmission Date: 20101027
  Serious: Yes (Hospitalization, Other)
  Sender: FDA-Public Use
  Company Number: US-BAYER-201026324NA

PATIENT
  Age: 76 Year
  Sex: Female

DRUGS (1)
  1. EOVIST [Suspect]
     Indication: NUCLEAR MAGNETIC RESONANCE IMAGING
     Dosage: TOTAL DAILY DOSE: 9 ML  UNIT DOSE: 20 ML
     Route: 042
     Dates: start: 20100621, end: 20100621

REACTIONS (5)
  - DIZZINESS [None]
  - DYSPNOEA [None]
  - FEELING JITTERY [None]
  - PALPITATIONS [None]
  - PHARYNGEAL OEDEMA [None]
